FAERS Safety Report 6330251-0 (Version None)
Quarter: 2009Q3

REPORT INFORMATION
  Report Type: 
  Country: None (occurrence: None)
  Receive Date: 20090827
  Receipt Date: 20090604
  Transmission Date: 20100115
  Serious: No
  Sender: FDA-Public Use
  Company Number: US-KINGPHARMUSA00001-K200900681

PATIENT
  Sex: Female
  Weight: 83.447 kg

DRUGS (4)
  1. FLECTOR [Suspect]
     Indication: ARTHRALGIA
     Dosage: 1 PATCH, Q 12 HOURS
     Route: 061
     Dates: start: 20090424
  2. ALEVE [Concomitant]
     Indication: BACK PAIN
     Dosage: UNK, PRN
  3. OXYCONTIN [Concomitant]
     Indication: BACK PAIN
     Dosage: UNK
  4. THIAMINE HCL [Concomitant]
     Dosage: UNK

REACTIONS (1)
  - LYMPHADENOPATHY [None]
